FAERS Safety Report 12795375 (Version 1)
Quarter: 2016Q3

REPORT INFORMATION
  Report Type: Spontaneous
  Country: US (occurrence: US)
  Receive Date: 20160929
  Receipt Date: 20160929
  Transmission Date: 20161109
  Serious: No
  Sender: FDA-Public Use
  Company Number: US-GLAXOSMITHKLINE-US2016141673

PATIENT
  Age: 78 Year
  Sex: Female

DRUGS (16)
  1. BIOTINE (BIOTIN) [Concomitant]
  2. DYMISTA [Concomitant]
     Active Substance: AZELASTINE HYDROCHLORIDE\FLUTICASONE PROPIONATE
  3. SYNTHROID [Concomitant]
     Active Substance: LEVOTHYROXINE SODIUM
  4. ATORVASTATIN [Concomitant]
     Active Substance: ATORVASTATIN
  5. FUROSEMIDE. [Concomitant]
     Active Substance: FUROSEMIDE
  6. NITROSTAT [Concomitant]
     Active Substance: NITROGLYCERIN
  7. ALLOPURINOL. [Concomitant]
     Active Substance: ALLOPURINOL
  8. VITAMIN D3 [Concomitant]
     Active Substance: CHOLECALCIFEROL
  9. FORTEO [Concomitant]
     Active Substance: TERIPARATIDE
     Route: 042
  10. ALBUTEROL. [Concomitant]
     Active Substance: ALBUTEROL
  11. ASPIRIN (BABY) [Concomitant]
     Active Substance: ASPIRIN
  12. DILTIAZEM. [Concomitant]
     Active Substance: DILTIAZEM
  13. ANORO ELLIPTA [Suspect]
     Active Substance: UMECLIDINIUM BROMIDE\VILANTEROL TRIFENATATE
     Indication: ASTHMA
     Dosage: 1 PUFF(S), 1D
     Route: 055
     Dates: start: 20160920
  14. SPIRONOLACTONE. [Concomitant]
     Active Substance: SPIRONOLACTONE
  15. MYRBETRIQ [Concomitant]
     Active Substance: MIRABEGRON
  16. SUCRALFATE. [Concomitant]
     Active Substance: SUCRALFATE

REACTIONS (2)
  - Dysphonia [Not Recovered/Not Resolved]
  - Off label use [Unknown]

NARRATIVE: CASE EVENT DATE: 20160920
